FAERS Safety Report 6648611-7 (Version None)
Quarter: 2010Q1

REPORT INFORMATION
  Report Type: 
  Country: None (occurrence: None)
  Receive Date: 20100324
  Receipt Date: 20100309
  Transmission Date: 20100710
  Serious: Yes (Death)
  Sender: FDA-Public Use
  Company Number: CH-SANOFI-AVENTIS-2010SA003778

PATIENT
  Age: 72 Year
  Sex: Female

DRUGS (5)
  1. AVE1642 [Suspect]
     Route: 042
     Dates: start: 20090323, end: 20090323
  2. AVE1642 [Suspect]
     Dates: start: 20091201, end: 20091201
  3. TAXOTERE [Suspect]
     Dates: start: 20090323, end: 20090323
  4. TAXOTERE [Suspect]
     Dates: start: 20091201, end: 20091201
  5. KEPPRA [Concomitant]
     Route: 065

REACTIONS (1)
  - DEMENTIA [None]
